FAERS Safety Report 6937532-8 (Version None)
Quarter: 2010Q3

REPORT INFORMATION
  Report Type: 
  Country: None (occurrence: None)
  Receive Date: 20100823
  Receipt Date: 20100823
  Transmission Date: 20110219
  Serious: Yes (Hospitalization, Other)
  Sender: FDA-Public Use
  Company Number: None

PATIENT
  Age: 31 Year
  Sex: Female
  Weight: 77.1115 kg

DRUGS (1)
  1. YAZ [Suspect]
     Indication: CONTRACEPTION
     Dosage: 3MG/.02MG FOR YA; 3MG/.03 FOR 28 DAY OPHTHALMIC
     Route: 047
     Dates: start: 20000601, end: 20100101

REACTIONS (2)
  - CHOLECYSTECTOMY [None]
  - ENDOSCOPIC RETROGRADE CHOLANGIOPANCREATOGRAPHY [None]
